FAERS Safety Report 9276408 (Version 2)
Quarter: 2013Q2

REPORT INFORMATION
  Report Type: Report from Study
  Country: BE (occurrence: BE)
  Receive Date: 20130507
  Receipt Date: 20130529
  Transmission Date: 20140414
  Serious: Yes (Other)
  Sender: FDA-Public Use
  Company Number: BE-AMGEN-BELNI2013029513

PATIENT
  Age: 72 Year
  Sex: Male

DRUGS (7)
  1. DENOSUMAB [Suspect]
     Indication: PRODUCT USED FOR UNKNOWN INDICATION
     Dosage: UNK
  2. XGEVA [Suspect]
     Indication: METASTASES TO BONE
     Dosage: 120 MG, Q4WK
     Route: 058
     Dates: start: 20120713
  3. BISPHOSPHONATES [Concomitant]
  4. OMEPRAZOLE [Concomitant]
     Dosage: 20 MG, UNK
     Route: 048
     Dates: start: 20100805
  5. PREDNISOLONE [Concomitant]
     Dosage: 5 MG, UNK
     Route: 048
     Dates: start: 20120918
  6. SIPRALEXA                          /01588501/ [Concomitant]
     Dosage: 10 MG, UNK
     Route: 048
     Dates: start: 20090325
  7. TRAZOLAN [Concomitant]
     Dosage: 100 MG, UNK
     Route: 048
     Dates: start: 20121127

REACTIONS (1)
  - Osteonecrosis of jaw [Not Recovered/Not Resolved]
